FAERS Safety Report 7772357-5 (Version None)
Quarter: 2011Q3

REPORT INFORMATION
  Report Type: 
  Country: None (occurrence: None)
  Receive Date: 20110922
  Receipt Date: 20110915
  Transmission Date: 20111222
  Serious: Yes (Other)
  Sender: FDA-Public Use
  Company Number: JP-SANOFI-AVENTIS-2011SA057220

PATIENT
  Age: 67 Year
  Sex: Male

DRUGS (5)
  1. ATORVASTATIN [Concomitant]
  2. ASPIRIN [Concomitant]
  3. LANSOPRAZOLE [Concomitant]
  4. MICARDIS [Concomitant]
  5. PLAVIX [Suspect]
     Indication: ACUTE MYOCARDIAL INFARCTION
     Route: 048
     Dates: start: 20110401, end: 20110824

REACTIONS (1)
  - INTERSTITIAL LUNG DISEASE [None]
